FAERS Safety Report 12546508 (Version 3)
Quarter: 2016Q3

REPORT INFORMATION
  Report Type: Spontaneous
  Country: JP (occurrence: JP)
  Receive Date: 20160711
  Receipt Date: 20160909
  Transmission Date: 20161109
  Serious: Yes (Death, Other)
  Sender: FDA-Public Use
  Company Number: JP-009507513-1607JPN004108

PATIENT
  Age: 77 Year
  Sex: Male
  Weight: 42 kg

DRUGS (15)
  1. TRAMAL [Concomitant]
     Active Substance: TRAMADOL
     Indication: CANCER PAIN
     Dosage: 50 MG, BID
     Route: 048
     Dates: start: 20160517, end: 20160530
  2. ZOLPIDEM TARTRATE. [Concomitant]
     Active Substance: ZOLPIDEM TARTRATE
     Indication: INSOMNIA
     Dosage: 5 MG AS NEEDED
     Route: 048
     Dates: start: 20160526, end: 20160526
  3. CARBAZOCHROME SODIUM SULFONATE [Concomitant]
     Active Substance: CARBAZOCHROME SODIUM SULFONATE
     Indication: HAEMORRHAGE PROPHYLAXIS
     Dosage: 100 MG, QD
     Route: 051
     Dates: start: 20160524, end: 20160531
  4. BELSOMRA [Suspect]
     Active Substance: SUVOREXANT
     Indication: INSOMNIA
     Dosage: 15 MG, QD
     Route: 048
     Dates: start: 20160107, end: 20160528
  5. BROTIZOLAM [Concomitant]
     Active Substance: BROTIZOLAM
     Indication: INSOMNIA
     Dosage: 0.25 MG AS NEEDED
     Route: 048
     Dates: start: 20160526, end: 20160526
  6. CEFTRIAXONE. [Concomitant]
     Active Substance: CEFTRIAXONE
     Indication: PNEUMONIA
     Dosage: 1 G, BID
     Route: 042
     Dates: start: 20160524, end: 20160527
  7. MINOCYCLINE HYDROCHLORIDE. [Concomitant]
     Active Substance: MINOCYCLINE HYDROCHLORIDE
     Indication: PNEUMONIA
     Dosage: 100 MG, BID
     Route: 041
     Dates: start: 20160524, end: 20160531
  8. MAGNESIUM OXIDE. [Concomitant]
     Active Substance: MAGNESIUM OXIDE
     Indication: CONSTIPATION
     Dosage: 660 MG, TID
     Route: 048
     Dates: start: 20160517, end: 20160530
  9. AMBROXOL HYDROCHLORIDE [Concomitant]
     Active Substance: AMBROXOL HYDROCHLORIDE
     Indication: PRODUCTIVE COUGH
     Dosage: 15 MG, TID
     Route: 048
     Dates: start: 20160526, end: 20160530
  10. CARBOCYSTEINE [Concomitant]
     Active Substance: CARBOCYSTEINE
     Indication: PRODUCTIVE COUGH
     Dosage: 250 MG, TID
     Route: 048
     Dates: start: 20160526, end: 20160530
  11. TRANEXAMIC ACID. [Concomitant]
     Active Substance: TRANEXAMIC ACID
     Indication: HAEMORRHAGE PROPHYLAXIS
     Dosage: 2000 MG, QD
     Route: 051
     Dates: start: 20160524, end: 20160531
  12. PANVITAN [Concomitant]
     Indication: LUNG NEOPLASM MALIGNANT
     Dosage: 1 G, AS NEEDED
     Route: 048
     Dates: start: 20160107, end: 20160530
  13. CALONAL [Concomitant]
     Active Substance: ACETAMINOPHEN
     Indication: CANCER PAIN
     Dosage: 400 MG AS NEEDED
     Route: 048
     Dates: start: 20160424, end: 20160524
  14. PREDONINE [Concomitant]
     Active Substance: PREDNISOLONE\PREDNISOLONE ACETATE\PREDNISOLONE SODIUM SUCCINATE
     Indication: LUNG NEOPLASM MALIGNANT
     Dosage: 20 MG, QD
     Route: 048
     Dates: start: 20160529, end: 20160601
  15. NEXIUM [Concomitant]
     Active Substance: ESOMEPRAZOLE MAGNESIUM
     Indication: PROPHYLAXIS AGAINST GASTROINTESTINAL ULCER
     Dosage: 20 MG, QD
     Route: 048
     Dates: start: 20160529, end: 20160601

REACTIONS (1)
  - Lung neoplasm malignant [Fatal]

NARRATIVE: CASE EVENT DATE: 20160601
